FAERS Safety Report 6302422-0 (Version None)
Quarter: 2009Q3

REPORT INFORMATION
  Report Type: 
  Country: None (occurrence: None)
  Receive Date: 20090810
  Receipt Date: 20090804
  Transmission Date: 20100115
  Serious: Yes (Life-Threatening, Hospitalization, Disabling)
  Sender: FDA-Public Use
  Company Number: US-JNJFOC-20070306339

PATIENT
  Sex: Female
  Weight: 64 kg

DRUGS (2)
  1. ORTHO EVRA [Suspect]
     Indication: CONTRACEPTION
     Route: 062
  2. LORTAB [Concomitant]

REACTIONS (2)
  - DEEP VEIN THROMBOSIS [None]
  - EMBOLIC STROKE [None]
